FAERS Safety Report 8216699-8 (Version None)
Quarter: 2012Q1

REPORT INFORMATION
  Report Type: 
  Country: None (occurrence: None)
  Receive Date: 20120316
  Receipt Date: 20120313
  Transmission Date: 20120608
  Serious: Yes (Death)
  Sender: FDA-Public Use
  Company Number: DE-ASTRAZENECA-2012SE14753

PATIENT
  Age: 69 Year
  Sex: Female

DRUGS (15)
  1. FUROSEMIDE [Suspect]
     Indication: PRODUCT USED FOR UNKNOWN INDICATION
     Route: 048
     Dates: start: 20100101, end: 20100711
  2. VANCOMYCIN [Concomitant]
  3. PIPERACILLIN AND TAZOBACTAM [Concomitant]
  4. ACETAMINOPHEN [Suspect]
     Route: 048
     Dates: start: 20100101, end: 20100714
  5. DIPYRONE TAB [Suspect]
     Indication: PRODUCT USED FOR UNKNOWN INDICATION
     Route: 065
     Dates: start: 20091001, end: 20100101
  6. MEROPENEM [Concomitant]
  7. OMEPRAZOLE [Suspect]
     Indication: GASTRIC ULCER
     Route: 048
     Dates: start: 20091101, end: 20100714
  8. OMACOR [Suspect]
     Indication: PRODUCT USED FOR UNKNOWN INDICATION
     Route: 048
     Dates: start: 20100101, end: 20100714
  9. ALLOPURINOL [Suspect]
     Route: 048
     Dates: start: 20100301, end: 20100714
  10. AMBISOME [Concomitant]
  11. VOLTAREN [Suspect]
     Dosage: UNK
     Route: 048
     Dates: start: 20090101, end: 20100101
  12. NITROGLYCERIN [Concomitant]
  13. TELMISARTAN AND HYDROCHLOROTHIAZIDE [Suspect]
     Indication: HYPERTENSION
     Route: 048
     Dates: start: 20100301, end: 20100714
  14. LINEZOLID [Concomitant]
  15. ANALGILASA [Suspect]
     Indication: OSTEOARTHRITIS
     Dosage: MONTHLY
     Route: 048
     Dates: start: 20091101, end: 20100714

REACTIONS (3)
  - APLASTIC ANAEMIA [None]
  - ASTHENIA [None]
  - PETECHIAE [None]
